FAERS Safety Report 15132279 (Version 5)
Quarter: 2020Q1

REPORT INFORMATION
  Report Type: Report from Study
  Country: US (occurrence: US)
  Receive Date: 20180711
  Receipt Date: 20200218
  Transmission Date: 20200409
  Serious: Yes (Life-Threatening, Hospitalization, Disabling, Other)
  Sender: FDA-Public Use
  Company Number: US-GILEAD-2018-0344543

PATIENT
  Age: 56 Year
  Sex: Male
  Weight: 71.3 kg

DRUGS (26)
  1. ALLOPURINOL. [Concomitant]
     Active Substance: ALLOPURINOL
  2. GABAPENTIN. [Concomitant]
     Active Substance: GABAPENTIN
  3. MORPHINE [Concomitant]
     Active Substance: MORPHINE
  4. PANTOPRAZOLE [Concomitant]
     Active Substance: PANTOPRAZOLE
  5. ACYCLOVIR                          /00587301/ [Concomitant]
     Active Substance: ACYCLOVIR
  6. NOXAFIL [Concomitant]
     Active Substance: POSACONAZOLE
  7. MEPRON [Concomitant]
     Active Substance: ATOVAQUONE
  8. AXICABTAGENE CILOLEUCEL [Suspect]
     Active Substance: AXICABTAGENE CILOLEUCEL
     Indication: DIFFUSE LARGE B-CELL LYMPHOMA REFRACTORY
     Dosage: 1 X 10^6 / KG, 68.0ML
     Route: 042
     Dates: start: 20180326, end: 20180326
  9. AMITRIPTYLINE [Concomitant]
     Active Substance: AMITRIPTYLINE
  10. OMEPRAZOLE. [Concomitant]
     Active Substance: OMEPRAZOLE
  11. CYCLOPHOSPHAMIDE. [Suspect]
     Active Substance: CYCLOPHOSPHAMIDE
     Indication: BONE MARROW CONDITIONING REGIMEN
     Dosage: 500 MG/M2, QD
     Route: 042
     Dates: start: 20180321, end: 20180323
  12. LIPITOR [Concomitant]
     Active Substance: ATORVASTATIN CALCIUM
  13. HYDROMORPHONE [Concomitant]
     Active Substance: HYDROMORPHONE
  14. ONDANSETRON [Concomitant]
     Active Substance: ONDANSETRON
  15. ATEZOLIZUMAB. [Suspect]
     Active Substance: ATEZOLIZUMAB
     Indication: DIFFUSE LARGE B-CELL LYMPHOMA REFRACTORY
     Dosage: 1200 MG, QD
     Route: 042
     Dates: start: 20180327, end: 20180327
  16. FLUDARABINE [Suspect]
     Active Substance: FLUDARABINE PHOSPHATE
     Indication: BONE MARROW CONDITIONING REGIMEN
     Dosage: 30 MG/M2, QD
     Route: 042
     Dates: start: 20180321, end: 20180323
  17. DOCUSATE [Concomitant]
     Active Substance: DOCUSATE
  18. DULOXETINE. [Concomitant]
     Active Substance: DULOXETINE
  19. LEVOFLOXACIN. [Concomitant]
     Active Substance: LEVOFLOXACIN
  20. BACTRIM [Concomitant]
     Active Substance: SULFAMETHOXAZOLE\TRIMETHOPRIM
  21. ATEZOLIZUMAB. [Suspect]
     Active Substance: ATEZOLIZUMAB
     Dosage: 1200 MG, QD
     Route: 042
     Dates: start: 20180423, end: 20180427
  22. NEUPOGEN [Concomitant]
     Active Substance: FILGRASTIM
  23. KEPPRA [Concomitant]
     Active Substance: LEVETIRACETAM
  24. ALPRAZOLAM. [Concomitant]
     Active Substance: ALPRAZOLAM
  25. BUPROPION. [Concomitant]
     Active Substance: BUPROPION
  26. PREDNISONE. [Concomitant]
     Active Substance: PREDNISONE

REACTIONS (4)
  - Myelodysplastic syndrome [Not Recovered/Not Resolved]
  - Pneumonia [Recovered/Resolved]
  - Febrile neutropenia [Recovered/Resolved]
  - Pyrexia [Recovered/Resolved]

NARRATIVE: CASE EVENT DATE: 20180507
